FAERS Safety Report 5252940-1 (Version None)
Quarter: 2007Q1

REPORT INFORMATION
  Report Type: 
  Country: None (occurrence: None)
  Receive Date: 20070220
  Receipt Date: 20070212
  Transmission Date: 20070707
  Serious: Yes (Other)
  Sender: FDA-Public Use
  Company Number: 200308806

PATIENT
  Age: 23 Year
  Sex: Female

DRUGS (2)
  1. GAMMAR-P I.V. [Suspect]
     Dosage: IV
     Route: 042
     Dates: start: 20030729, end: 20030826
  2. GAMMAR-P I.V. [Suspect]
     Dosage: IV
     Route: 042
     Dates: start: 20030729, end: 20030826

REACTIONS (5)
  - CYTOMEGALOVIRUS ANTIBODY POSITIVE [None]
  - DRUG EXPOSURE DURING PREGNANCY [None]
  - HEPATITIS B ANTIBODY POSITIVE [None]
  - SYPHILIS TEST POSITIVE [None]
  - THERAPEUTIC PRODUCT CONTAMINATION [None]
